FAERS Safety Report 20692282 (Version 1)
Quarter: 2022Q2

REPORT INFORMATION
  Report Type: Spontaneous
  Country: GB (occurrence: GB)
  Receive Date: 20220409
  Receipt Date: 20220409
  Transmission Date: 20220721
  Serious: No
  Sender: FDA-Public Use
  Company Number: None

PATIENT

DRUGS (10)
  1. QUETIAPINE FUMARATE [Suspect]
     Active Substance: QUETIAPINE FUMARATE
     Dosage: 800 MILLIGRAM, QD
     Route: 048
     Dates: start: 20211115
  2. PROMETHAZINE [Suspect]
     Active Substance: PROMETHAZINE HYDROCHLORIDE
     Indication: Product used for unknown indication
     Dosage: 50 MILLIGRAM, BID
     Route: 048
     Dates: start: 20211116
  3. CLONAZEPAM [Suspect]
     Active Substance: CLONAZEPAM
     Indication: Agitation
     Dosage: 1 MILLIGRAM
     Route: 048
     Dates: start: 20211115
  4. CLOZARIL [Suspect]
     Active Substance: CLOZAPINE
     Indication: Schizophrenia
     Dosage: UNK
     Route: 048
     Dates: start: 20211122
  5. HALOPERIDOL [Suspect]
     Active Substance: HALOPERIDOL
     Indication: Psychotic symptom
     Dosage: 5 MILLIGRAM
     Route: 048
     Dates: start: 20211115
  6. HALOPERIDOL [Suspect]
     Active Substance: HALOPERIDOL
     Indication: Sedation complication
  7. LORAZEPAM [Suspect]
     Active Substance: LORAZEPAM
     Indication: Sedation complication
     Dosage: 2 MILLIGRAM
     Route: 048
     Dates: start: 20211115
  8. PROCYCLIDINE [Suspect]
     Active Substance: PROCYCLIDINE
     Indication: Extrapyramidal disorder
     Dosage: 5 MILLIGRAM, TID
     Route: 048
     Dates: start: 20211115
  9. PROCYCLIDINE [Suspect]
     Active Substance: PROCYCLIDINE
     Indication: Dystonia
  10. DIVALPROEX SODIUM [Suspect]
     Active Substance: DIVALPROEX SODIUM
     Indication: Product used for unknown indication
     Dosage: 1 MILLIGRAM, BID
     Route: 048
     Dates: start: 20211115

REACTIONS (2)
  - Gynaecomastia [Unknown]
  - Weight increased [Unknown]
